FAERS Safety Report 12617372 (Version 4)
Quarter: 2017Q3

REPORT INFORMATION
  Report Type: Report from Study
  Country: KR (occurrence: KR)
  Receive Date: 20160803
  Receipt Date: 20170710
  Transmission Date: 20171127
  Serious: Yes (Hospitalization)
  Sender: FDA-Public Use
  Company Number: KR-ROCHE-1799768

PATIENT
  Age: 68 Year
  Sex: Male
  Weight: 62 kg

DRUGS (17)
  1. DILATREND [Concomitant]
     Active Substance: CARVEDILOL
     Indication: HYPERTENSION
     Route: 048
     Dates: start: 20160620
  2. COLCHIN [Concomitant]
     Indication: GOUT
     Route: 048
     Dates: start: 20160713
  3. TARGIN [Concomitant]
     Active Substance: NALOXONE HYDROCHLORIDE\OXYCODONE HYDROCHLORIDE
     Indication: ANGINA PECTORIS
     Dosage: 1 TABLET
     Route: 048
     Dates: start: 20160716, end: 20160718
  4. CALCIUM GLUCONATE. [Concomitant]
     Active Substance: CALCIUM GLUCONATE
     Indication: HYPOCALCAEMIA
     Route: 042
     Dates: start: 20160703, end: 20160703
  5. DILATREND [Concomitant]
     Active Substance: CARVEDILOL
     Route: 048
     Dates: start: 20160718
  6. NACL 3% [Concomitant]
     Indication: HYPONATRAEMIA
     Route: 042
     Dates: start: 20160703, end: 20160703
  7. CURAN [Concomitant]
     Active Substance: RANITIDINE HYDROCHLORIDE
     Indication: GASTRITIS
     Route: 048
     Dates: start: 20160713, end: 20160719
  8. SYNTHROID [Concomitant]
     Active Substance: LEVOTHYROXINE SODIUM
     Indication: HYPOTHYROIDISM
     Route: 048
     Dates: start: 20160715
  9. HUMULIN R [Concomitant]
     Active Substance: INSULIN HUMAN
     Indication: HYPOGLYCAEMIA
     Route: 042
     Dates: start: 20160703, end: 20160703
  10. MECKOOL [Concomitant]
     Indication: NAUSEA
     Route: 042
     Dates: start: 20160703, end: 20160703
  11. COLCHIN [Concomitant]
     Route: 048
     Dates: start: 20160721
  12. LANSTON [Concomitant]
     Active Substance: LANSOPRAZOLE
     Indication: GASTRITIS
     Route: 048
     Dates: start: 20160719
  13. GASTER (SOUTH KOREA) [Concomitant]
     Indication: GASTRITIS
     Route: 042
     Dates: start: 20160703, end: 20160703
  14. ATEZOLIZUMAB. [Suspect]
     Active Substance: ATEZOLIZUMAB
     Indication: BLADDER TRANSITIONAL CELL CARCINOMA
     Dosage: MOST RECENT DOSE: 29/JUN/2016
     Route: 042
     Dates: start: 20150119
  15. CONCOR [Concomitant]
     Active Substance: BISOPROLOL FUMARATE
     Indication: HYPERTENSION
     Dosage: 5MG
     Route: 048
     Dates: start: 20160629
  16. KANARB [Concomitant]
     Indication: HYPERTENSION
     Route: 048
     Dates: start: 20160620, end: 20160718
  17. MORPHINE SULFATE. [Concomitant]
     Active Substance: MORPHINE SULFATE
     Indication: ANGINA PECTORIS
     Route: 042
     Dates: start: 20160716, end: 20160716

REACTIONS (1)
  - Pericardial effusion [Recovered/Resolved]

NARRATIVE: CASE EVENT DATE: 20160703
